FAERS Safety Report 8496671-3 (Version None)
Quarter: 2012Q3

REPORT INFORMATION
  Report Type: 
  Country: None (occurrence: None)
  Receive Date: 20120709
  Receipt Date: 20120702
  Transmission Date: 20120928
  Serious: Yes (Other)
  Sender: FDA-Public Use
  Company Number: NO-B.I. PHARMACEUTICALS,INC./RIDGEFIELD-2012-SW-00541NO

PATIENT
  Sex: Male

DRUGS (3)
  1. PRADAXA [Suspect]
     Route: 048
  2. ZOLPIDEM TATRATE [Concomitant]
  3. NITROGLYCERIN [Concomitant]

REACTIONS (1)
  - EROSIVE DUODENITIS [None]
